FAERS Safety Report 8829908 (Version 1)
Quarter: 2012Q4

REPORT INFORMATION
  Report Type: Spontaneous
  Country: US (occurrence: None)
  Receive Date: 20121004
  Receipt Date: 20121004
  Transmission Date: 20130627
  Serious: Yes (Other)
  Sender: FDA-Public Use
  Company Number: 2012AP003142

PATIENT
  Sex: Female

DRUGS (2)
  1. MONTELUKAST SODIUM [Suspect]
     Indication: DRUG USE FOR UNKNOWN INDICATION
  2. SINGULAIR [Concomitant]

REACTIONS (2)
  - Wheezing [None]
  - Oral pruritus [None]
